FAERS Safety Report 5689752-0 (Version None)
Quarter: 2008Q1

REPORT INFORMATION
  Report Type: 
  Country: None (occurrence: None)
  Receive Date: 20080328
  Receipt Date: 20080317
  Transmission Date: 20080703
  Serious: Yes (Other)
  Sender: FDA-Public Use
  Company Number: OSCN-PR-0803S-0158

PATIENT
  Sex: Male

DRUGS (3)
  1. OMNISCAN [Suspect]
     Indication: DYSPNOEA
     Dosage: SINGLE DOSE,I.V.
     Route: 042
     Dates: start: 20050201, end: 20050201
  2. OMNISCAN [Suspect]
     Indication: DYSPNOEA
     Dosage: SINGLE DOSE,I.V.
     Route: 042
     Dates: start: 20050513, end: 20050513
  3. GADOLINIUM (UNSPECIFIED) [Concomitant]

REACTIONS (1)
  - NEPHROGENIC SYSTEMIC FIBROSIS [None]
